FAERS Safety Report 4821975-2 (Version None)
Quarter: 2005Q4

REPORT INFORMATION
  Report Type: 
  Country: None (occurrence: None)
  Receive Date: 20051103
  Receipt Date: 20051025
  Transmission Date: 20060501
  Serious: Yes (Hospitalization)
  Sender: FDA-Public Use
  Company Number: 2005147820

PATIENT
  Age: 50 Year
  Sex: Female

DRUGS (11)
  1. ATORVASTATIN CALCIUM [Suspect]
     Indication: BLOOD CHOLESTEROL INCREASED
     Dosage: 80 MG (80 MG, 1 IN 1 D)
  2. EZETROL       (EZETIMIBE) [Suspect]
     Indication: BLOOD CHOLESTEROL INCREASED
     Dosage: 10 MG (10 MG, 1 IN 1 D)
  3. ACETAMINOPHEN [Concomitant]
  4. ATENOLOL [Concomitant]
  5. DICLOFENAC SODIUM [Concomitant]
  6. DILTIAZEM HYDROCHLORIDE [Concomitant]
  7. FUROSEMIDE [Concomitant]
  8. IBUPROFEN [Concomitant]
  9. LACTULOSE [Concomitant]
  10. LEVOTHYROXINE SODIUM [Concomitant]
  11. CLOPIDOGREL BISULFATE [Concomitant]

REACTIONS (3)
  - ABDOMINAL PAIN UPPER [None]
  - DYSPEPSIA [None]
  - HEPATITIS [None]
